FAERS Safety Report 8917146 (Version 2)
Quarter: 2012Q4

REPORT INFORMATION
  Report Type: Report from Study
  Country: JP (occurrence: JP)
  Receive Date: 20121120
  Receipt Date: 20121221
  Transmission Date: 20130627
  Serious: Yes (Other)
  Sender: FDA-Public Use
  Company Number: JP-VERTEX PHARMACEUTICAL INC.-AE-2012-008471

PATIENT
  Age: 67 Year
  Sex: Male

DRUGS (4)
  1. VX-950 (TELAPREVIR) [Suspect]
     Indication: CHRONIC HEPATITIS C
     Dosage: 1500 mg, qd
     Route: 048
     Dates: start: 20120405, end: 20120522
  2. RIBAVIRIN [Suspect]
     Indication: CHRONIC HEPATITIS C
     Dosage: 600 mg, qd
     Route: 048
     Dates: start: 20120405, end: 20120522
  3. PEGINTERFERON ALFA-2B [Suspect]
     Indication: CHRONIC HEPATITIS C
     Dosage: 1.5 ?g/kg,qw
     Route: 058
     Dates: start: 20120405, end: 20120516
  4. RHYTHMY [Concomitant]
     Dosage: 2 mg, prn
     Route: 048
     Dates: start: 20120403

REACTIONS (3)
  - Decreased appetite [Recovered/Resolved]
  - Thirst [Recovered/Resolved]
  - Malaise [Recovered/Resolved]
